FAERS Safety Report 18112484 (Version 1)
Quarter: 2020Q3

REPORT INFORMATION
  Report Type: Spontaneous
  Country: GB (occurrence: GB)
  Receive Date: 20200805
  Receipt Date: 20200805
  Transmission Date: 20201103
  Serious: Yes (Hospitalization)
  Sender: FDA-Public Use
  Company Number: GB-ACCORD-193819

PATIENT
  Age: 44 Year
  Sex: Male
  Weight: 90.4 kg

DRUGS (4)
  1. DOCOSAHEXANOIC ACID/EICOSAPENTAENOIC ACID [Concomitant]
     Active Substance: DOCONEXENT\ICOSAPENT
  2. HYDROXYCHLOROQUINE [Suspect]
     Active Substance: HYDROXYCHLOROQUINE
     Indication: COVID-19
     Route: 048
     Dates: start: 20200515, end: 20200517
  3. VERBASCUM SPP. [Concomitant]
  4. SELENIUM [Concomitant]
     Active Substance: SELENIUM

REACTIONS (2)
  - Acute myocardial infarction [Recovering/Resolving]
  - Palpitations [Recovered/Resolved]

NARRATIVE: CASE EVENT DATE: 20200715
